FAERS Safety Report 4596848-3 (Version None)
Quarter: 2005Q1

REPORT INFORMATION
  Report Type: 
  Country: None (occurrence: None)
  Receive Date: 20050228
  Receipt Date: 20050215
  Transmission Date: 20050727
  Serious: Yes (Hospitalization)
  Sender: FDA-Public Use
  Company Number: HQWYE398718FEB05

PATIENT
  Age: 48 Year
  Sex: Male
  Weight: 78 kg

DRUGS (6)
  1. RAPAMUNE [Suspect]
     Indication: PROPHYLAXIS AGAINST TRANSPLANT REJECTION
     Dosage: 5 MG 1X PER 1 DAY, ORAL
     Route: 048
     Dates: start: 20050126
  2. TACROLIMUS (TACROLIMUS, ) [Suspect]
  3. CORTICOSTEROID NOS               (CORTICOSTEROID NOS) [Concomitant]
  4. CALCIUM CARBONATE           (CALCIUM CARBONATE) [Concomitant]
  5. CLOTRIMAZOLE                 (CLOTRIMAZOLE) [Concomitant]
  6. FAMOTIDINE [Concomitant]

REACTIONS (5)
  - ANASTOMOTIC COMPLICATION [None]
  - COMPLICATIONS OF TRANSPLANTED KIDNEY [None]
  - HYDRONEPHROSIS [None]
  - STENOSIS OF VESICOURETHRAL ANASTOMOSIS [None]
  - URINARY RETENTION [None]
